FAERS Safety Report 7771467-6 (Version None)
Quarter: 2011Q3

REPORT INFORMATION
  Report Type: 
  Country: None (occurrence: None)
  Receive Date: 20110922
  Receipt Date: 20110620
  Transmission Date: 20111222
  Serious: No
  Sender: FDA-Public Use
  Company Number: US-ASTRAZENECA-2011SE37590

PATIENT
  Age: 43 Year
  Sex: Female

DRUGS (2)
  1. XANAX [Concomitant]
  2. SEROQUEL [Suspect]
     Indication: SLEEP DISORDER
     Route: 048

REACTIONS (2)
  - DRUG DOSE OMISSION [None]
  - ANGER [None]
